FAERS Safety Report 15796791 (Version 4)
Quarter: 2019Q1

REPORT INFORMATION
  Report Type: Spontaneous
  Country: US (occurrence: US)
  Receive Date: 20190108
  Receipt Date: 20190306
  Transmission Date: 20190417
  Serious: No
  Sender: FDA-Public Use
  Company Number: US-BIOGEN-2018BI00677762

PATIENT
  Sex: Female

DRUGS (1)
  1. TYSABRI [Suspect]
     Active Substance: NATALIZUMAB
     Indication: MULTIPLE SCLEROSIS
     Route: 050
     Dates: start: 20060830, end: 20180918

REACTIONS (5)
  - Coagulation factor XIII level abnormal [Unknown]
  - Haematoma [Unknown]
  - Prescribed underdose [Unknown]
  - Coagulopathy [Unknown]
  - Activated partial thromboplastin time prolonged [Unknown]
